FAERS Safety Report 12183630 (Version 1)
Quarter: 2016Q1

REPORT INFORMATION
  Report Type: Spontaneous
  Country: US (occurrence: None)
  Receive Date: 20160315
  Receipt Date: 20160315
  Transmission Date: 20160526
  Serious: Yes (Other)
  Sender: FDA-Public Use
  Company Number: None

PATIENT
  Age: 61 Year
  Sex: Female
  Weight: 68.04 kg

DRUGS (6)
  1. VITAMIN D3 [Concomitant]
     Active Substance: CHOLECALCIFEROL
  2. ATENOLOL AND CHLORTHALIDONE [Suspect]
     Active Substance: ATENOLOL\CHLORTHALIDONE
     Dosage: 50-25 MG 1 PILL DAILY ONCE DAILY TAKEN BY MOUTH
     Route: 048
     Dates: start: 20160210, end: 20160310
  3. OMEGA-3 (WILD SALMON OIL) [Concomitant]
  4. GARLIC PILL [Concomitant]
  5. VITAMIN B12 [Concomitant]
     Active Substance: CYANOCOBALAMIN
  6. COQ10 [Concomitant]
     Active Substance: UBIDECARENONE

REACTIONS (5)
  - Product substitution issue [None]
  - Hypoaesthesia [None]
  - Dizziness [None]
  - Fluid retention [None]
  - Headache [None]
